FAERS Safety Report 8665663 (Version 2)
Quarter: 2012Q4

REPORT INFORMATION
  Report Type: 
  Country: DE (occurrence: DE)
  Receive Date: 20120716
  Receipt Date: 20120830
  Transmission Date: 20130627
  Serious: Yes (Life-Threatening, Hospitalization)
  Sender: FDA-Public Use
  Company Number: DE-AMGEN-DEUSP2012043106

PATIENT
  Age: 29 Year
  Sex: Female
  Weight: 50 kg

DRUGS (1)
  1. ARANESP [Suspect]
     Indication: NEPHROGENIC ANAEMIA
     Dosage: 60 mug, qd
     Route: 042
     Dates: start: 20111228, end: 20111228

REACTIONS (8)
  - Laryngeal oedema [Unknown]
  - Diarrhoea [Unknown]
  - Retching [Unknown]
  - Tachycardia [Unknown]
  - Nausea [Unknown]
  - Mean arterial pressure decreased [Unknown]
  - Blood pressure decreased [Unknown]
  - Anaphylactic reaction [Unknown]
